FAERS Safety Report 15573483 (Version 3)
Quarter: 2019Q4

REPORT INFORMATION
  Report Type: Report from Study
  Country: US (occurrence: US)
  Receive Date: 20181101
  Receipt Date: 20191122
  Transmission Date: 20200122
  Serious: Yes (Hospitalization)
  Sender: FDA-Public Use
  Company Number: US-ROCHE-2206856

PATIENT
  Sex: Male
  Weight: 127 kg

DRUGS (4)
  1. OCREVUS [Suspect]
     Active Substance: OCRELIZUMAB
     Route: 042
     Dates: start: 201707
  2. BACLOFEN. [Concomitant]
     Active Substance: BACLOFEN
  3. OCREVUS [Suspect]
     Active Substance: OCRELIZUMAB
     Route: 042
     Dates: start: 20180607
  4. OCREVUS [Suspect]
     Active Substance: OCRELIZUMAB
     Indication: PRIMARY PROGRESSIVE MULTIPLE SCLEROSIS
     Dosage: DAY 1 AND DAY 14 FOLLOWED BY 600 MG EVERY 6 MONTHS?TREATMENT DATES: 07/JUN/2018, 22/JUN/2018,14/DEC/
     Route: 042
     Dates: start: 201706

REACTIONS (7)
  - Skin discolouration [Not Recovered/Not Resolved]
  - Decubitus ulcer [Recovering/Resolving]
  - Rash [Not Recovered/Not Resolved]
  - Emotional distress [Not Recovered/Not Resolved]
  - Limb injury [Unknown]
  - Urinary tract infection [Recovered/Resolved]
  - Off label use [Unknown]
